FAERS Safety Report 16313948 (Version 1)
Quarter: 2019Q2

REPORT INFORMATION
  Report Type: Spontaneous
  Country: US (occurrence: US)
  Receive Date: 20190515
  Receipt Date: 20190515
  Transmission Date: 20190711
  Serious: No
  Sender: FDA-Public Use
  Company Number: US-BAYER-2019-096232

PATIENT
  Age: 61 Year
  Sex: Female

DRUGS (1)
  1. BETASERON [Suspect]
     Active Substance: INTERFERON BETA-1B
     Indication: MULTIPLE SCLEROSIS
     Dosage: 0.25 MG
     Route: 058

REACTIONS (19)
  - Anxiety [None]
  - Injection site reaction [None]
  - Product dose omission [None]
  - Walking aid user [None]
  - Hypertension [None]
  - Pain of skin [None]
  - Hypoaesthesia [None]
  - Balance disorder [None]
  - Depression [None]
  - Dyskinesia [None]
  - Diplopia [None]
  - Hypotension [None]
  - Headache [None]
  - Pain in extremity [None]
  - Influenza like illness [None]
  - Vision blurred [None]
  - Memory impairment [None]
  - Injection site discolouration [None]
  - Malaise [None]

NARRATIVE: CASE EVENT DATE: 201902
